FAERS Safety Report 9487574 (Version 2)
Quarter: 2013Q3

REPORT INFORMATION
  Report Type: Spontaneous
  Country: US (occurrence: US)
  Receive Date: 20130725
  Receipt Date: 20130725
  Transmission Date: 20140515
  Serious: No
  Sender: FDA-Public Use
  Company Number: US-GLAXOSMITHKLINE-A0815590A

PATIENT
  Sex: Female
  Weight: 108.2 kg

DRUGS (2)
  1. AVANDIA [Suspect]
     Indication: DIABETES MELLITUS
     Dosage: 4MG UNKNOWN
     Route: 048
     Dates: start: 200101, end: 200909
  2. AVANDAMET [Suspect]
     Indication: DIABETES MELLITUS
     Route: 048
     Dates: start: 20040103

REACTIONS (6)
  - Heart rate irregular [Unknown]
  - Chest pain [Unknown]
  - Cardiac flutter [Unknown]
  - Cardiomegaly [Unknown]
  - Pain in extremity [Unknown]
  - Pain in extremity [Unknown]
